FAERS Safety Report 16404630 (Version 1)
Quarter: 2019Q2

REPORT INFORMATION
  Report Type: Spontaneous
  Country: GB (occurrence: GB)
  Receive Date: 20190607
  Receipt Date: 20190607
  Transmission Date: 20190711
  Serious: Yes (Disabling, Other)
  Sender: FDA-Public Use
  Company Number: GB-TORRENT-00002281

PATIENT
  Age: 74 Year
  Sex: Female

DRUGS (3)
  1. STALEVO [Concomitant]
     Active Substance: CARBIDOPA\ENTACAPONE\LEVODOPA
     Indication: PARKINSON^S DISEASE
     Dosage: 100/12.5/200. DATE STARTED: YEARS AGO
     Route: 048
  2. RASAGILINE. [Concomitant]
     Active Substance: RASAGILINE
     Indication: PARKINSON^S DISEASE
     Dosage: DATE STARTED: YEARS AGO
     Route: 048
  3. PRAMIPEXOLE. [Suspect]
     Active Substance: PRAMIPEXOLE
     Indication: PARKINSON^S DISEASE
     Dosage: DRUG STOPPED LESS THAN FOUR WEEKS LATER
     Route: 048
     Dates: start: 20120425, end: 201205

REACTIONS (2)
  - Dermatitis allergic [Recovered/Resolved]
  - Product substitution issue [Unknown]
